FAERS Safety Report 6755875-8 (Version None)
Quarter: 2010Q2

REPORT INFORMATION
  Report Type: 
  Country: None (occurrence: None)
  Receive Date: 20100603
  Receipt Date: 20100603
  Transmission Date: 20101027
  Serious: Yes (Other)
  Sender: FDA-Public Use
  Company Number: None

PATIENT
  Age: 71 Year
  Sex: Male
  Weight: 99.7913 kg

DRUGS (2)
  1. CAPZASIN 0.15% CHATTEN INC [Suspect]
     Indication: PAIN
     Dosage: ONE
     Dates: start: 20100528, end: 20100528
  2. CAPZASIN 0.15% CHATTEN INC [Suspect]
     Indication: PAIN IN EXTREMITY
     Dosage: ONE
     Dates: start: 20100528, end: 20100528

REACTIONS (3)
  - BURNING SENSATION [None]
  - DRUG INEFFECTIVE [None]
  - PRODUCT QUALITY ISSUE [None]
